FAERS Safety Report 8839606 (Version 1)
Quarter: 2012Q4

REPORT INFORMATION
  Report Type: 
  Country: US (occurrence: None)
  Receive Date: 20121012
  Receipt Date: 20121012
  Transmission Date: 20130627
  Serious: Yes (Hospitalization)
  Sender: FDA-Public Use
  Company Number: None

PATIENT
  Sex: Male
  Weight: 87.1 kg

DRUGS (1)
  1. ALFA 2 INTERFERON 2B (INTRON-A) [Suspect]
     Dates: start: 20120921

REACTIONS (5)
  - Cognitive disorder [None]
  - Mood altered [None]
  - Abnormal behaviour [None]
  - Treatment noncompliance [None]
  - Psychotic disorder [None]
